APPROVED DRUG PRODUCT: BIMATOPROST
Active Ingredient: BIMATOPROST
Strength: 0.01%
Dosage Form/Route: SOLUTION/DROPS;OPHTHALMIC
Application: A217289 | Product #001 | TE Code: AB
Applicant: AMNEAL EU LTD
Approved: Sep 22, 2025 | RLD: No | RS: No | Type: RX